FAERS Safety Report 12622449 (Version 2)
Quarter: 2016Q3

REPORT INFORMATION
  Report Type: Spontaneous
  Country: JP (occurrence: JP)
  Receive Date: 20160804
  Receipt Date: 20160809
  Transmission Date: 20161109
  Serious: Yes (Hospitalization, Other)
  Sender: FDA-Public Use
  Company Number: PHHY2016JP106712

PATIENT
  Age: 78 Year
  Sex: Female

DRUGS (3)
  1. RIVASTACH [Suspect]
     Active Substance: RIVASTIGMINE
     Dosage: 54 MG (SIX 9 MG PATCHES)
     Route: 062
     Dates: end: 201607
  2. RIVASTACH [Suspect]
     Active Substance: RIVASTIGMINE
     Indication: DEMENTIA ALZHEIMER^S TYPE
     Dosage: UNK
     Route: 062
  3. ARICEPT [Suspect]
     Active Substance: DONEPEZIL HYDROCHLORIDE
     Indication: DEMENTIA ALZHEIMER^S TYPE
     Dosage: UNK
     Route: 048
     Dates: start: 2015

REACTIONS (6)
  - Treatment noncompliance [Unknown]
  - Vomiting [Recovered/Resolved]
  - Nausea [Recovered/Resolved]
  - Overdose [Unknown]
  - Neuroleptic malignant syndrome [Recovered/Resolved]
  - Wrong technique in product usage process [Unknown]

NARRATIVE: CASE EVENT DATE: 20160718
